FAERS Safety Report 13248863 (Version 1)
Quarter: 2017Q1

REPORT INFORMATION
  Report Type: Spontaneous
  Country: US (occurrence: US)
  Receive Date: 20170218
  Receipt Date: 20170218
  Transmission Date: 20170428
  Serious: No
  Sender: FDA-Public Use
  Company Number: US-ALLERGAN-1625415US

PATIENT
  Sex: Female

DRUGS (3)
  1. LOTEMAX [Suspect]
     Active Substance: LOTEPREDNOL ETABONATE
     Indication: INFLAMMATION
  2. RESTASIS [Suspect]
     Active Substance: CYCLOSPORINE
     Indication: EYE LUBRICATION THERAPY
     Dosage: UNK
     Route: 047
     Dates: start: 2014
  3. LOTEMAX [Suspect]
     Active Substance: LOTEPREDNOL ETABONATE
     Indication: HYPERSENSITIVITY

REACTIONS (1)
  - Hypoacusis [Recovered/Resolved]
